FAERS Safety Report 17012312 (Version 1)
Quarter: 2019Q4

REPORT INFORMATION
  Report Type: Report from Study
  Country: DE (occurrence: DE)
  Receive Date: 20191108
  Receipt Date: 20191108
  Transmission Date: 20200122
  Serious: Yes (Hospitalization)
  Sender: FDA-Public Use
  Company Number: DE-CELGENEUS-DEU-2015100834

PATIENT
  Age: 7 Decade
  Sex: Female

DRUGS (2)
  1. ABRAXANE [Suspect]
     Active Substance: PACLITAXEL
     Indication: PANCREATIC CARCINOMA METASTATIC
     Dosage: 228.75 MILLIGRAM
     Route: 041
     Dates: start: 20150914, end: 20151123
  2. GEMCITABINE. [Suspect]
     Active Substance: GEMCITABINE
     Indication: PANCREATIC CARCINOMA METASTATIC
     Dosage: 1830 MILLIGRAM
     Route: 065
     Dates: start: 20150914, end: 20150914

REACTIONS (5)
  - Diarrhoea [Not Recovered/Not Resolved]
  - Paraesthesia [Recovered/Resolved]
  - General physical health deterioration [Recovered/Resolved]
  - Dizziness [Not Recovered/Not Resolved]
  - Dry skin [Recovered/Resolved]

NARRATIVE: CASE EVENT DATE: 20150914
